FAERS Safety Report 21308919 (Version 2)
Quarter: 2022Q3

REPORT INFORMATION
  Report Type: Report from Study
  Country: CN (occurrence: CN)
  Receive Date: 20220908
  Receipt Date: 20220920
  Transmission Date: 20221027
  Serious: Yes (Death)
  Sender: FDA-Public Use
  Company Number: CN-NOVARTISPH-NVSC2020CN362804

PATIENT
  Age: 68 Year
  Sex: Female

DRUGS (6)
  1. PLACEBO [Suspect]
     Active Substance: UNSPECIFIED INGREDIENT
     Indication: Gastric cancer
     Dosage: 200 MG, Q3W
     Route: 042
     Dates: start: 20191122, end: 20200519
  2. CAPECITABINE [Suspect]
     Active Substance: CAPECITABINE
     Indication: Gastric cancer
     Dosage: UNK
     Route: 048
     Dates: start: 20191122, end: 20200519
  3. INSULIN HUMAN [Concomitant]
     Active Substance: INSULIN HUMAN
     Indication: Type 2 diabetes mellitus
     Dosage: UNK
     Route: 042
     Dates: start: 20200521
  4. VITAMINS [Concomitant]
     Active Substance: VITAMINS
     Indication: Nutritional supplementation
     Dosage: UNK
     Route: 065
     Dates: start: 20200515
  5. GLUCOSE 10% BAXTER [Concomitant]
     Indication: Nutritional supplementation
     Dosage: UNK
     Route: 042
     Dates: start: 20200515
  6. ALANYL GLUTAMINE [Concomitant]
     Active Substance: ALANYL GLUTAMINE
     Indication: Nutritional supplementation
     Dosage: UNK
     Route: 042
     Dates: start: 20200515

REACTIONS (1)
  - Death [Fatal]

NARRATIVE: CASE EVENT DATE: 20200526
